FAERS Safety Report 4731874-2 (Version None)
Quarter: 2005Q3

REPORT INFORMATION
  Report Type: 
  Country: None (occurrence: None)
  Receive Date: 20050725
  Receipt Date: 20041119
  Transmission Date: 20060218
  Serious: Yes (Other)
  Sender: FDA-Public Use
  Company Number: WAES 0411USA03609

PATIENT
  Sex: Male

DRUGS (2)
  1. VIOXX [Suspect]
     Dosage: UNK/UNK/PO
     Route: 048
  2. COUMADIN [Concomitant]

REACTIONS (1)
  - BLOOD PRESSURE INCREASED [None]
